FAERS Safety Report 5370206-6 (Version None)
Quarter: 2007Q2

REPORT INFORMATION
  Report Type: 
  Country: None (occurrence: None)
  Receive Date: 20070626
  Receipt Date: 20070620
  Transmission Date: 20071010
  Serious: Yes (Disabling, Other)
  Sender: FDA-Public Use
  Company Number: US-ASTRAZENECA-2007UW07434

PATIENT
  Age: 60 Year
  Sex: Male

DRUGS (5)
  1. TOPROL-XL [Suspect]
     Indication: HYPERTENSION
     Route: 048
     Dates: start: 20070227
  2. COREG [Suspect]
     Indication: HYPERTENSION
     Route: 048
     Dates: start: 20070201, end: 20070226
  3. LISINOPRIL [Concomitant]
     Route: 048
  4. MULTIVITAMIN [Concomitant]
  5. CHILDREN'S ASPIRIN [Concomitant]
     Route: 048

REACTIONS (6)
  - ANXIETY [None]
  - BLOOD SODIUM DECREASED [None]
  - FATIGUE [None]
  - INSOMNIA [None]
  - OEDEMA PERIPHERAL [None]
  - THINKING ABNORMAL [None]
